FAERS Safety Report 4984225-2 (Version None)
Quarter: 2006Q2

REPORT INFORMATION
  Report Type: 
  Country: None (occurrence: None)
  Receive Date: 20060427
  Receipt Date: 20060405
  Transmission Date: 20061013
  Serious: Yes (Hospitalization)
  Sender: FDA-Public Use
  Company Number: DE-AVENTIS-200610970DE

PATIENT
  Age: 36 Year
  Sex: Male

DRUGS (2)
  1. ENOXAPARIN SODIUM [Suspect]
     Dosage: DOSE: NOT REPORTED
     Route: 058
     Dates: start: 20060101
  2. ENOXAPARIN SODIUM [Suspect]
     Indication: HAEMATOMA
     Dosage: DOSE: NOT REPORTED
     Route: 058
     Dates: start: 20060101

REACTIONS (4)
  - FEAR [None]
  - HYPERTENSION [None]
  - PANIC ATTACK [None]
  - PHARMACEUTICAL PRODUCT COMPLAINT [None]
